FAERS Safety Report 14030753 (Version 2)
Quarter: 2017Q4

REPORT INFORMATION
  Report Type: Spontaneous
  Country: RU (occurrence: RU)
  Receive Date: 20171002
  Receipt Date: 20171206
  Transmission Date: 20180321
  Serious: Yes (Other)
  Sender: FDA-Public Use
  Company Number: RU-BEH-2017083931

PATIENT
  Age: 63 Year
  Sex: Male

DRUGS (1)
  1. MONONINE [Suspect]
     Active Substance: COAGULATION FACTOR IX HUMAN
     Indication: FACTOR IX DEFICIENCY
     Dosage: 15000 IU, QMT
     Route: 042

REACTIONS (3)
  - Asphyxia [Unknown]
  - Pruritus [Unknown]
  - Myalgia [Unknown]
